FAERS Safety Report 5154018-4 (Version None)
Quarter: 2006Q4

REPORT INFORMATION
  Report Type: 
  Country: None (occurrence: None)
  Receive Date: 20061120
  Receipt Date: 20061110
  Transmission Date: 20070319
  Serious: Yes (Hospitalization)
  Sender: FDA-Public Use
  Company Number: FR-GLAXOSMITHKLINE-B0446239A

PATIENT
  Age: 66 Year
  Sex: Male

DRUGS (7)
  1. DEROXAT [Suspect]
     Route: 048
     Dates: start: 20050601, end: 20060701
  2. TOCO [Concomitant]
     Dosage: 500MG FOUR TIMES PER DAY
     Route: 048
     Dates: start: 20020101
  3. RILUTEK [Concomitant]
     Dosage: 100MG TWICE PER DAY
     Route: 048
     Dates: start: 20030701
  4. PERINDOPRIL ERBUMINE [Concomitant]
     Route: 065
  5. KENZEN [Concomitant]
     Route: 065
     Dates: start: 20060201
  6. PREVISCAN [Concomitant]
     Route: 065
     Dates: start: 20060501
  7. PENTACARINAT [Concomitant]
     Route: 065
     Dates: start: 20060518

REACTIONS (5)
  - BLISTER [None]
  - PEMPHIGOID [None]
  - PRURITUS [None]
  - TOXIC SKIN ERUPTION [None]
  - URTICARIA [None]
